FAERS Safety Report 20518539 (Version 6)
Quarter: 2022Q3

REPORT INFORMATION
  Report Type: Spontaneous
  Country: US (occurrence: US)
  Receive Date: 20220225
  Receipt Date: 20220722
  Transmission Date: 20221026
  Serious: Yes (Hospitalization, Other)
  Sender: FDA-Public Use
  Company Number: US-SA-SAC20220221000360

PATIENT
  Age: 42 Year
  Sex: Female

DRUGS (3)
  1. FABRAZYME [Suspect]
     Active Substance: AGALSIDASE BETA
     Indication: Fabry^s disease
     Dosage: 70 MG, QOW
     Route: 042
     Dates: start: 20220121, end: 2022
  2. FABRAZYME [Suspect]
     Active Substance: AGALSIDASE BETA
     Dosage: 15 MG, QOW
     Route: 042
     Dates: start: 2022
  3. FABRAZYME [Suspect]
     Active Substance: AGALSIDASE BETA
     Dosage: 80 MG, QOW
     Route: 042
     Dates: start: 2022

REACTIONS (8)
  - Colon operation [Unknown]
  - Product dose omission issue [Unknown]
  - Rectal prolapse repair [Unknown]
  - Acute kidney injury [Unknown]
  - Ejection fraction decreased [Unknown]
  - Dysuria [Unknown]
  - Vomiting [Unknown]
  - Product dose omission in error [Unknown]

NARRATIVE: CASE EVENT DATE: 20220204
